FAERS Safety Report 23281431 (Version 1)
Quarter: 2023Q4

REPORT INFORMATION
  Report Type: Spontaneous
  Country: CN (occurrence: CN)
  Receive Date: 20231211
  Receipt Date: 20231211
  Transmission Date: 20240110
  Serious: Yes (Other)
  Sender: FDA-Public Use
  Company Number: CN-AMGEN-CHNSP2023218256

PATIENT
  Age: 55 Year
  Sex: Male
  Weight: 57 kg

DRUGS (3)
  1. KYPROLIS [Suspect]
     Active Substance: CARFILZOMIB
     Indication: Plasma cell myeloma
     Dosage: 32 MILLIGRAM
     Route: 042
     Dates: start: 20231114, end: 20231115
  2. KYPROLIS [Suspect]
     Active Substance: CARFILZOMIB
     Dosage: 43 MILLIGRAM
     Route: 042
     Dates: start: 20231121, end: 20231122
  3. KYPROLIS [Suspect]
     Active Substance: CARFILZOMIB
     Dosage: 43 MILLIGRAM
     Route: 042
     Dates: start: 20231128, end: 20231129

REACTIONS (1)
  - Myelosuppression [Recovering/Resolving]

NARRATIVE: CASE EVENT DATE: 20231202
